FAERS Safety Report 7772754-8 (Version None)
Quarter: 2011Q3

REPORT INFORMATION
  Report Type: 
  Country: None (occurrence: None)
  Receive Date: 20110922
  Receipt Date: 20101004
  Transmission Date: 20111222
  Serious: No
  Sender: FDA-Public Use
  Company Number: US-ASTRAZENECA-2010SE46711

PATIENT
  Age: 13 Year
  Sex: Male
  Weight: 63.5 kg

DRUGS (7)
  1. VITAMIN D [Concomitant]
  2. MULTI-VITAMINS [Concomitant]
  3. ABILIFY [Concomitant]
  4. INTUNIV [Concomitant]
  5. DEPAKOTE [Concomitant]
  6. SEROQUEL [Suspect]
     Indication: BIPOLAR DISORDER
     Route: 048
     Dates: start: 20090101
  7. IMPERHIME [Concomitant]

REACTIONS (6)
  - FATIGUE [None]
  - WEIGHT INCREASED [None]
  - DRUG EFFECT DECREASED [None]
  - AGITATION [None]
  - CIRCADIAN RHYTHM SLEEP DISORDER [None]
  - INCREASED APPETITE [None]
